FAERS Safety Report 16883774 (Version 1)
Quarter: 2019Q4

REPORT INFORMATION
  Report Type: Spontaneous
  Country: US (occurrence: US)
  Receive Date: 20191004
  Receipt Date: 20191004
  Transmission Date: 20200122
  Serious: Yes (Hospitalization)
  Sender: FDA-Public Use
  Company Number: US-HIKMA PHARMACEUTICALS USA INC.-US-H14001-19-04874

PATIENT
  Age: 66 Year
  Sex: Female
  Weight: 71.2 kg

DRUGS (6)
  1. PREDNISONE. [Suspect]
     Active Substance: PREDNISONE
     Indication: MYASTHENIC SYNDROME
     Route: 065
     Dates: start: 2014, end: 201811
  2. MYCOPHENOLATE MOFETIL. [Concomitant]
     Active Substance: MYCOPHENOLATE MOFETIL
     Indication: PRODUCT USED FOR UNKNOWN INDICATION
     Dosage: FOR UP TO 5 MONTHS PRIOR TO FINISHING THE STUDY IN NOV-2018
     Route: 065
  3. FIRDAPSE [Suspect]
     Active Substance: AMIFAMPRIDINE
     Indication: MYASTHENIC SYNDROME
     Route: 048
     Dates: start: 201602, end: 201811
  4. FIRDAPSE [Suspect]
     Active Substance: AMIFAMPRIDINE
     Route: 065
  5. PYRIDOSTIGMINE BROMIDE. [Concomitant]
     Active Substance: PYRIDOSTIGMINE BROMIDE
     Indication: PRODUCT USED FOR UNKNOWN INDICATION
     Route: 065
  6. PREDNISONE. [Suspect]
     Active Substance: PREDNISONE
     Dosage: 5 MG EVERY OTHER DAY AND 10 MG EVERY OTHER DAY
     Route: 065

REACTIONS (8)
  - Ear infection [Recovered/Resolved]
  - Gait inability [Recovering/Resolving]
  - Coordination abnormal [Not Recovered/Not Resolved]
  - Asthenia [Recovering/Resolving]
  - Tremor [Not Recovered/Not Resolved]
  - Hypokinesia [Recovering/Resolving]
  - Balance disorder [Recovering/Resolving]
  - Malaise [Recovering/Resolving]

NARRATIVE: CASE EVENT DATE: 201908
